FAERS Safety Report 9776730 (Version 1)
Quarter: 2013Q4

REPORT INFORMATION
  Report Type: Spontaneous
  Country: JP (occurrence: JP)
  Receive Date: 20131220
  Receipt Date: 20131220
  Transmission Date: 20140711
  Serious: Yes (Other)
  Sender: FDA-Public Use
  Company Number: PHHY2013JP147433

PATIENT
  Age: 66 Year
  Sex: Male

DRUGS (9)
  1. 5-FLUOROURACIL [Suspect]
     Dosage: 25 PERCENT DOSE REDUCED FOLFOX, EVERY 3 WEEKS
  2. 5-FLUOROURACIL [Suspect]
     Dosage: 25 PERCENT DOSE REDUCED FOLFIRI, EVERY 2 WEEKS
  3. FOLINIC ACID [Suspect]
     Dosage: 25 PERCENT DOSE REDUCED FOLFOX, EVERY 3 WEEKS
  4. FOLINIC ACID [Suspect]
     Dosage: 25 PERCENT DOSE REDUCED FOLFIRI, EVERY 2 WEEKS
  5. OXALIPLATIN [Suspect]
     Dosage: 25 PERCENT DOSE REDUCED FOLFOX, EVERY 3 WEEKS
  6. IRINOTECAN [Suspect]
     Dosage: 25 PERCENT DOSE REDUCED FOLFIRI, EVERY 2 WEEKS
  7. PANITUMUMAB [Suspect]
     Dosage: 6 MG/KG, QW2
  8. PANITUMUMAB [Suspect]
     Dosage: 6 MG/KG, UNK
  9. BEVACIZUMAB [Concomitant]

REACTIONS (5)
  - Neurotoxicity [Unknown]
  - Rash [Unknown]
  - Paronychia [Unknown]
  - Colorectal cancer metastatic [Unknown]
  - Malignant neoplasm progression [Unknown]
